FAERS Safety Report 5535762-3 (Version None)
Quarter: 2007Q4

REPORT INFORMATION
  Report Type: 
  Country: None (occurrence: None)
  Receive Date: 20071203
  Receipt Date: 20071203
  Transmission Date: 20080405
  Serious: Yes (Hospitalization)
  Sender: FDA-Public Use
  Company Number: None

PATIENT
  Sex: Male
  Weight: 96.8 kg

DRUGS (1)
  1. TEMOZOLOMIDE [Suspect]
     Dosage: 4950 MG

REACTIONS (5)
  - ARTERIAL OCCLUSIVE DISEASE [None]
  - CHRONIC OBSTRUCTIVE PULMONARY DISEASE [None]
  - CONDITION AGGRAVATED [None]
  - LUNG DISORDER [None]
  - PULMONARY EMBOLISM [None]
